FAERS Safety Report 7935016-1 (Version None)
Quarter: 2011Q4

REPORT INFORMATION
  Report Type: 
  Country: None (occurrence: None)
  Receive Date: 20111117
  Receipt Date: 20111104
  Transmission Date: 20120403
  Serious: Yes (Life-Threatening, Hospitalization)
  Sender: FDA-Public Use
  Company Number: 2011MA016053

PATIENT
  Sex: Male
  Weight: 78.0187 kg

DRUGS (11)
  1. DIGOXIN [Suspect]
     Indication: ARRHYTHMIA
     Dosage: 0.25 MG;QD;PO
     Route: 048
     Dates: start: 20080303, end: 20081029
  2. CARDIZEM [Concomitant]
  3. JANUVIA [Concomitant]
  4. LISINOPRIL [Concomitant]
  5. LEVEMIR [Concomitant]
  6. METFORMIN HCL [Concomitant]
  7. ASPIRIN [Concomitant]
  8. MULTI-VITAMIN [Concomitant]
  9. GLYBURIDE [Concomitant]
  10. INDOCIN [Concomitant]
  11. IRON [Concomitant]

REACTIONS (40)
  - LIVER INJURY [None]
  - MULTIPLE INJURIES [None]
  - HEART RATE INCREASED [None]
  - PALPITATIONS [None]
  - ATRIAL FIBRILLATION [None]
  - BILE DUCT STENOSIS [None]
  - VENTRICULAR FIBRILLATION [None]
  - AGEUSIA [None]
  - CARDIAC DISORDER [None]
  - BLOOD GLUCOSE ABNORMAL [None]
  - ARTERIOSCLEROSIS CORONARY ARTERY [None]
  - BILIARY DILATATION [None]
  - NEPHROLITHIASIS [None]
  - HYPOTENSION [None]
  - DYSPNOEA EXERTIONAL [None]
  - BLOOD ALKALINE PHOSPHATASE INCREASED [None]
  - ASPARTATE AMINOTRANSFERASE INCREASED [None]
  - DIZZINESS [None]
  - DIABETES MELLITUS INADEQUATE CONTROL [None]
  - CARDIAC FLUTTER [None]
  - MALAISE [None]
  - CARDIOACTIVE DRUG LEVEL DECREASED [None]
  - SPLENOMEGALY [None]
  - ASTHENIA [None]
  - HEART RATE DECREASED [None]
  - DECREASED APPETITE [None]
  - WEIGHT DECREASED [None]
  - HEPATOMEGALY [None]
  - MASS [None]
  - DYSPHAGIA [None]
  - MESENTERIC LYMPHADENOPATHY [None]
  - NAUSEA [None]
  - BILE DUCT OBSTRUCTION [None]
  - FATIGUE [None]
  - BRADYCARDIA [None]
  - ESSENTIAL HYPERTENSION [None]
  - DIARRHOEA [None]
  - BILIARY TRACT DISORDER [None]
  - CHOLANGITIS SCLEROSING [None]
  - ALANINE AMINOTRANSFERASE INCREASED [None]
